FAERS Safety Report 6219697-9 (Version None)
Quarter: 2009Q2

REPORT INFORMATION
  Report Type: 
  Country: None (occurrence: None)
  Receive Date: 20090605
  Receipt Date: 20090526
  Transmission Date: 20091009
  Serious: Yes (Death)
  Sender: FDA-Public Use
  Company Number: GXKR2009US06213

PATIENT
  Age: 18 Year
  Sex: Female
  Weight: 88.6 kg

DRUGS (2)
  1. BUPROPION (NGX) (BUPROPION) EXTENDED RELEASE TABLET, 300MG [Suspect]
     Dosage: ORAL
     Route: 048
  2. SELEGILINE [Concomitant]

REACTIONS (6)
  - CARDIO-RESPIRATORY ARREST [None]
  - DRUG TOXICITY [None]
  - INTENTIONAL OVERDOSE [None]
  - PULMONARY OEDEMA [None]
  - SUICIDE ATTEMPT [None]
  - VOMITING [None]
